FAERS Safety Report 7005706-6 (Version None)
Quarter: 2010Q3

REPORT INFORMATION
  Report Type: 
  Country: None (occurrence: None)
  Receive Date: 20100917
  Receipt Date: 20100621
  Transmission Date: 20110219
  Serious: Yes (Other)
  Sender: FDA-Public Use
  Company Number: DSA_43352_2010

PATIENT
  Sex: Male

DRUGS (9)
  1. XENAZINE [Suspect]
     Indication: DYSKINESIA
     Dosage: 12.5 MG BID ORAL
     Route: 048
     Dates: start: 20100501, end: 20100607
  2. XENAZINE [Suspect]
     Indication: HUNTINGTON'S DISEASE
     Dosage: 12.5 MG BID ORAL
     Route: 048
     Dates: start: 20100501, end: 20100607
  3. DEPAKOTE [Concomitant]
  4. KLONOPIN [Concomitant]
  5. BUSPAR [Concomitant]
  6. CLONIDINE [Concomitant]
  7. ZYPREXA [Concomitant]
  8. ZYRTEC [Concomitant]
  9. COGENTIN [Concomitant]

REACTIONS (2)
  - DEPRESSION [None]
  - SUICIDAL IDEATION [None]
